FAERS Safety Report 7377469-6 (Version None)
Quarter: 2011Q1

REPORT INFORMATION
  Report Type: 
  Country: None (occurrence: None)
  Receive Date: 20110328
  Receipt Date: 20110314
  Transmission Date: 20110831
  Serious: Yes (Other)
  Sender: FDA-Public Use
  Company Number: PHHY2011JP09924

PATIENT
  Sex: Male
  Weight: 43 kg

DRUGS (10)
  1. DIART [Suspect]
     Dosage: 30 MG, DAILY
     Route: 048
     Dates: start: 20100914, end: 20110112
  2. CONIEL [Concomitant]
     Indication: HYPERTENSION
     Dosage: 2 MG, UNK
     Route: 048
     Dates: start: 20100513, end: 20100623
  3. ARTIST [Concomitant]
     Indication: HYPERTENSION
     Dosage: 5 MG, UNK
     Route: 048
     Dates: start: 20100513
  4. DIART [Suspect]
     Dosage: 15 MG, DAILY
     Route: 048
     Dates: start: 20100907, end: 20100913
  5. DIART [Suspect]
     Indication: HYPERTENSION
     Dosage: 30 MG, DAILY
     Route: 048
     Dates: start: 20100513, end: 20100804
  6. DIART [Suspect]
     Dosage: 15 MG, DAILY
     Route: 048
     Dates: start: 20100805, end: 20100812
  7. ALISKIREN [Suspect]
     Dosage: 150 MG, DAILY
     Route: 048
     Dates: start: 20100914, end: 20101006
  8. ALISKIREN [Suspect]
     Dosage: 150 MG, DAILY
     Route: 048
     Dates: start: 20101130, end: 20110112
  9. ALOSITOL [Concomitant]
     Dosage: 100 MG, UNK
     Route: 048
     Dates: start: 20100513
  10. ALISKIREN [Suspect]
     Dosage: 150 MG, DAILY
     Route: 048
     Dates: start: 20100624, end: 20100812

REACTIONS (5)
  - BLOOD UREA INCREASED [None]
  - HYPERKALAEMIA [None]
  - DEHYDRATION [None]
  - CARDIAC FAILURE [None]
  - BLOOD CREATININE INCREASED [None]
